FAERS Safety Report 24994797 (Version 1)
Quarter: 2025Q1

REPORT INFORMATION
  Report Type: Spontaneous
  Country: CZ (occurrence: CZ)
  Receive Date: 20250221
  Receipt Date: 20250221
  Transmission Date: 20250409
  Serious: Yes (Hospitalization, Other)
  Sender: RANBAXY
  Company Number: CZ-SUN PHARMACEUTICAL INDUSTRIES LTD-2025R1-494453

PATIENT
  Age: 7 Year
  Sex: Female

DRUGS (2)
  1. CLINDAMYCIN [Suspect]
     Active Substance: CLINDAMYCIN
     Indication: Antibiotic therapy
     Route: 042
  2. PENICILLIN [Suspect]
     Active Substance: PENICILLIN
     Indication: Antibiotic therapy
     Route: 042

REACTIONS (1)
  - Condition aggravated [Unknown]
